FAERS Safety Report 5037059-7 (Version None)
Quarter: 2006Q2

REPORT INFORMATION
  Report Type: 
  Country: None (occurrence: None)
  Receive Date: 20060601
  Receipt Date: 20060201
  Transmission Date: 20061013
  Serious: No
  Sender: FDA-Public Use
  Company Number: 2006PV008030

PATIENT
  Age: 47 Year
  Sex: Male
  Weight: 113.3993 kg

DRUGS (9)
  1. BYETTA [Suspect]
     Indication: DIABETES MELLITUS NON-INSULIN-DEPENDENT
     Dosage: SEE IMAGE
     Route: 058
     Dates: start: 20051210, end: 20060109
  2. BYETTA [Suspect]
     Indication: DIABETES MELLITUS NON-INSULIN-DEPENDENT
     Dosage: SEE IMAGE
     Route: 058
     Dates: start: 20060110
  3. METFORMIN [Concomitant]
  4. GLUCOTROL [Concomitant]
  5. AVANDIA [Concomitant]
  6. ASPIRIN [Concomitant]
  7. CARDIZEM [Concomitant]
  8. ALTACE [Concomitant]
  9. PLAVIX [Concomitant]

REACTIONS (2)
  - DRUG EFFECT DECREASED [None]
  - INJECTION SITE HAEMORRHAGE [None]
